FAERS Safety Report 9785254 (Version 2)
Quarter: 2014Q1

REPORT INFORMATION
  Report Type: Report from Study
  Country: JP (occurrence: JP)
  Receive Date: 20131227
  Receipt Date: 20140203
  Transmission Date: 20141002
  Serious: No
  Sender: FDA-Public Use
  Company Number: JP-JNJFOC-20131215747

PATIENT
  Age: 48 Year
  Sex: Male
  Weight: 62 kg

DRUGS (11)
  1. STELARA [Suspect]
     Indication: PSORIASIS
     Route: 058
     Dates: start: 20131126
  2. STELARA [Suspect]
     Indication: PSORIASIS
     Route: 058
     Dates: start: 20130903, end: 20130903
  3. STELARA [Suspect]
     Indication: PSORIASIS
     Route: 058
     Dates: start: 20130611, end: 20130611
  4. STELARA [Suspect]
     Indication: PSORIASIS
     Route: 058
     Dates: start: 20130315, end: 20130315
  5. STELARA [Suspect]
     Indication: PSORIASIS
     Route: 058
     Dates: start: 20121225, end: 20121225
  6. STELARA [Suspect]
     Indication: PSORIASIS
     Route: 058
     Dates: start: 20121127, end: 20121127
  7. DOVONEX [Concomitant]
     Indication: PSORIASIS
     Route: 061
  8. KINDAVATE [Concomitant]
     Indication: PSORIASIS
     Route: 061
  9. KINDAVATE [Concomitant]
     Indication: PSORIASIS
     Route: 061
     Dates: start: 20130205
  10. BONALFA [Concomitant]
     Indication: PSORIASIS
     Route: 061
  11. BONALFA [Concomitant]
     Indication: PSORIASIS
     Route: 061
     Dates: end: 20130903

REACTIONS (1)
  - Hepatic function abnormal [Recovering/Resolving]
